FAERS Safety Report 11786468 (Version 1)
Quarter: 2015Q4

REPORT INFORMATION
  Report Type: Spontaneous
  Country: ES (occurrence: ES)
  Receive Date: 20151130
  Receipt Date: 20151130
  Transmission Date: 20160305
  Serious: Yes (Other)
  Sender: FDA-Public Use
  Company Number: ES-JNJFOC-20151122861

PATIENT
  Age: 49 Year
  Sex: Female

DRUGS (13)
  1. FENTANYL. [Suspect]
     Active Substance: FENTANYL
     Indication: PAIN
     Dosage: 0-0-1
     Route: 062
     Dates: start: 2014
  2. OMEPRAZOLE. [Concomitant]
     Active Substance: OMEPRAZOLE
     Indication: GASTROINTESTINAL DISORDER THERAPY
     Dosage: 1-0-0
     Route: 065
     Dates: start: 2010
  3. PAROXETINE [Concomitant]
     Active Substance: PAROXETINE\PAROXETINE HYDROCHLORIDE
     Indication: DEPRESSION
     Dosage: 1-0-0
     Route: 065
     Dates: start: 2014
  4. LEVOTHYROXINE. [Concomitant]
     Active Substance: LEVOTHYROXINE
     Indication: HYPOTHYROIDISM
     Dosage: 1-0-0
     Route: 065
     Dates: start: 2010
  5. FENTANYL. [Suspect]
     Active Substance: FENTANYL
     Indication: PAIN
     Dosage: 0-0-1??ONE 12.5 UG/HR PATCH AND ONE 25 UG/HR PATCH
     Route: 062
     Dates: start: 2014
  6. IRON SULPHATE [Concomitant]
     Active Substance: FERROUS SULFATE ANHYDROUS
     Indication: ANAEMIA
     Dosage: 1-0-0
     Route: 065
     Dates: start: 2010
  7. PREGABALIN. [Suspect]
     Active Substance: PREGABALIN
     Indication: PAIN
     Dosage: 0-0-1
     Route: 065
     Dates: start: 2014
  8. ALPRAZOLAM. [Suspect]
     Active Substance: ALPRAZOLAM
     Indication: DYSKINESIA
     Dosage: 0-0-1
     Route: 065
     Dates: start: 2014
  9. CALCIUM CARBONATE. [Concomitant]
     Active Substance: CALCIUM CARBONATE
     Indication: SURGERY
     Dosage: 0-1-0
     Route: 065
     Dates: start: 2012
  10. ALPRAZOLAM. [Suspect]
     Active Substance: ALPRAZOLAM
     Indication: DYSKINESIA
     Dosage: 0-1-0
     Route: 065
     Dates: start: 2014
  11. TRAZODONE [Suspect]
     Active Substance: TRAZODONE HYDROCHLORIDE
     Indication: DEPRESSION
     Dosage: 0-0-2
     Route: 065
     Dates: start: 2010
  12. TRAMADOL RETARD [Suspect]
     Active Substance: TRAMADOL
     Indication: PAIN
     Dosage: 1-0-1
     Route: 065
     Dates: start: 2014
  13. CYANOCOBALAMINE [Concomitant]
     Active Substance: CYANOCOBALAMIN
     Indication: SURGERY
     Dosage: 0-1-0
     Route: 065
     Dates: start: 2012

REACTIONS (5)
  - Femur fracture [Unknown]
  - Fall [Unknown]
  - Overdose [Unknown]
  - Somnolence [Unknown]
  - Toxicity to various agents [Unknown]
